FAERS Safety Report 8812581 (Version 2)
Quarter: 2012Q4

REPORT INFORMATION
  Report Type: 
  Country: US (occurrence: US)
  Receive Date: 20120927
  Receipt Date: 20121004
  Transmission Date: 20130627
  Serious: No
  Sender: FDA-Public Use
  Company Number: US-009507513-1209USA008362

PATIENT
  Age: 15 None
  Sex: Female
  Weight: 48.98 kg

DRUGS (12)
  1. MIRALAX [Suspect]
     Indication: CONSTIPATION
     Dosage: 17 g, qd
     Route: 048
     Dates: start: 201108
  2. MIRALAX [Suspect]
     Indication: MEDICAL OBSERVATION
     Dosage: 17 g, qd
     Route: 048
     Dates: start: 201108
  3. VITAMINS (UNSPECIFIED) [Concomitant]
     Indication: PRODUCT USED FOR UNKNOWN INDICATION
     Dosage: UNK, Unknown
  4. BENADRYL [Concomitant]
     Indication: FOOD ALLERGY
     Dosage: UNK, Unknown
  5. BENADRYL [Concomitant]
     Indication: RASH
  6. BENADRYL [Concomitant]
     Indication: LIP SWELLING
  7. BENADRYL [Concomitant]
     Indication: ORAL PRURITUS
  8. EPIPEN [Concomitant]
     Indication: FOOD ALLERGY
     Dosage: UNK, Unknown
  9. EPIPEN [Concomitant]
     Indication: RASH
  10. EPIPEN [Concomitant]
     Indication: LIP SWELLING
  11. EPIPEN [Concomitant]
     Indication: ORAL PRURITUS
  12. PROAIR (ALBUTEROL SULFATE) [Concomitant]
     Indication: ASTHMA
     Dosage: UNK, Unknown

REACTIONS (5)
  - Dysgeusia [Recovered/Resolved]
  - Drug administered to patient of inappropriate age [Unknown]
  - Off label use [Unknown]
  - Incorrect drug administration duration [Unknown]
  - No adverse event [Unknown]
